FAERS Safety Report 6758537-6 (Version None)
Quarter: 2010Q2

REPORT INFORMATION
  Report Type: 
  Country: None (occurrence: None)
  Receive Date: 20100607
  Receipt Date: 20100603
  Transmission Date: 20101027
  Serious: Yes (Hospitalization)
  Sender: FDA-Public Use
  Company Number: B0658609A

PATIENT
  Age: 65 Year
  Sex: Male

DRUGS (2)
  1. AUGMENTIN '125' [Suspect]
     Indication: URINARY TRACT INFECTION
     Route: 048
     Dates: start: 20100330
  2. TIORFAN [Suspect]
     Indication: DIARRHOEA
     Route: 048
     Dates: start: 20100401

REACTIONS (6)
  - CHILLS [None]
  - DIARRHOEA [None]
  - MICROCYTIC ANAEMIA [None]
  - PRURITUS [None]
  - PURPURA [None]
  - PYREXIA [None]
